FAERS Safety Report 5824619-6 (Version None)
Quarter: 2008Q3

REPORT INFORMATION
  Report Type: 
  Country: None (occurrence: None)
  Receive Date: 20080728
  Receipt Date: 20080721
  Transmission Date: 20090109
  Serious: Yes (Other)
  Sender: FDA-Public Use
  Company Number: US-ELI_LILLY_AND_COMPANY-US200807003955

PATIENT
  Sex: Female

DRUGS (3)
  1. FORTEO [Suspect]
     Indication: OSTEOPOROSIS
     Dates: start: 20080624, end: 20080718
  2. FORTEO [Suspect]
     Dosage: UNK, UNK
     Dates: start: 20080701
  3. CALCIUM [Concomitant]
     Dosage: 1650 MG, DAILY (1/D)

REACTIONS (1)
  - BLOOD CALCIUM INCREASED [None]
